FAERS Safety Report 9227570 (Version 1)
Quarter: 2013Q2

REPORT INFORMATION
  Report Type: Spontaneous
  Country: US (occurrence: None)
  Receive Date: 20130411
  Receipt Date: 20130411
  Transmission Date: 20140414
  Serious: Yes (Hospitalization)
  Sender: FDA-Public Use
  Company Number: None

PATIENT
  Age: 59 Year
  Sex: Female
  Weight: 109.4 kg

DRUGS (7)
  1. EXCEDRIN [Suspect]
     Indication: MIGRAINE
     Dosage: RECENT
     Route: 048
  2. VILAZODONE [Concomitant]
  3. ARIPIPRAZOLE [Concomitant]
  4. QUETIAPINE [Concomitant]
  5. PANTOPRAZOLE [Concomitant]
  6. KLONOPIN [Concomitant]
  7. ERGOCALCIFEROL [Concomitant]

REACTIONS (2)
  - Upper gastrointestinal haemorrhage [None]
  - Gastrointestinal ulcer [None]
